FAERS Safety Report 4557853-6 (Version None)
Quarter: 2005Q1

REPORT INFORMATION
  Report Type: 
  Country: None (occurrence: None)
  Receive Date: 20050103
  Receipt Date: 20040916
  Transmission Date: 20050727
  Serious: Yes (Other)
  Sender: FDA-Public Use
  Company Number: 2004UW19390

PATIENT
  Age: 64 Year
  Sex: Female
  Weight: 114.76 kg

DRUGS (9)
  1. CRESTOR [Suspect]
     Indication: BLOOD CHOLESTEROL INCREASED
     Dosage: 10 MG PO
     Route: 048
     Dates: start: 20040825
  2. CRESTOR [Suspect]
     Indication: BLOOD CHOLESTEROL INCREASED
     Dosage: 10 MG PO
     Route: 048
  3. LASIX [Concomitant]
  4. BENTYL [Concomitant]
  5. LEVSIN PB [Concomitant]
  6. ATARAX [Concomitant]
  7. ULTRACET [Concomitant]
  8. NEXIUM [Concomitant]
  9. XANAX [Concomitant]

REACTIONS (3)
  - BLOOD URINE PRESENT [None]
  - MEDICATION ERROR [None]
  - OVERDOSE [None]
